FAERS Safety Report 6851082-9 (Version None)
Quarter: 2010Q3

REPORT INFORMATION
  Report Type: 
  Country: None (occurrence: None)
  Receive Date: 20100716
  Receipt Date: 20071026
  Transmission Date: 20110219
  Serious: No
  Sender: FDA-Public Use
  Company Number: US-PFIZER INC-2007090864

PATIENT
  Sex: Female
  Weight: 88.5 kg

DRUGS (3)
  1. CHANTIX [Suspect]
     Indication: SMOKING CESSATION THERAPY
     Dates: start: 20071021
  2. WELCHOL [Concomitant]
  3. LEVOTHYROXINE SODIUM [Concomitant]
     Indication: THYROID DISORDER

REACTIONS (1)
  - HEADACHE [None]
